FAERS Safety Report 10369457 (Version 1)
Quarter: 2014Q1

REPORT INFORMATION
  Report Type: Spontaneous
  Country: US (occurrence: None)
  Receive Date: 20140306
  Receipt Date: 20140306
  Transmission Date: 20141002
  Serious: Yes (Hospitalization)
  Sender: FDA-Public Use
  Company Number: 163-21880-13091229

PATIENT
  Age: 58 Year
  Sex: Female

DRUGS (15)
  1. REVLIMID [Suspect]
     Indication: MYELODYSPLASTIC SYNDROME
     Route: 048
     Dates: start: 201302, end: 201307
  2. NOXAFIL (POSACONAZOLE) [Concomitant]
  3. CIPROFLOXACIN HCL (CIPROFLOXACIN HYDROCHLORIDE) [Concomitant]
  4. LORAZEPAM [Concomitant]
  5. SIMVASTATIN [Concomitant]
  6. PROCHLORPERAZINE MALEATE [Concomitant]
  7. VITAMIN D (ERGOCALCIFEROL) [Concomitant]
  8. LEVOTHYROXINE [Concomitant]
  9. DACOGEN (DECITABINE) [Concomitant]
  10. DELTA D3 (COLECALCIFEROL) [Concomitant]
  11. LOPERAMIDE HCL (LOPERAMIDE HYDROCHLORIDE) [Concomitant]
  12. MIRACLE MOUTHWASH (OTHER AGENTS FOR LOCAL ORAL TREATMENT) [Concomitant]
  13. VALACYCLOVIR HCL (VALACICLOVIR HYDROCHLORIDE) [Concomitant]
  14. VICODIN [Concomitant]
  15. POTASSIUM [Concomitant]

REACTIONS (2)
  - Acute myeloid leukaemia [None]
  - Myelodysplastic syndrome transformation [None]
